FAERS Safety Report 5235227-2 (Version None)
Quarter: 2007Q1

REPORT INFORMATION
  Report Type: 
  Country: None (occurrence: None)
  Receive Date: 20070207
  Receipt Date: 20070207
  Transmission Date: 20070707
  Serious: Yes (Other)
  Sender: FDA-Public Use
  Company Number: None

PATIENT
  Age: 5 Year
  Sex: Male
  Weight: 28 kg

DRUGS (1)
  1. TAMIFLU [Suspect]
     Indication: INFLUENZA
     Dosage: 60 MG Q12H PO
     Route: 048
     Dates: start: 20070130, end: 20070201

REACTIONS (3)
  - DELIRIUM [None]
  - MEMORY IMPAIRMENT [None]
  - SLEEP WALKING [None]
